FAERS Safety Report 19670130 (Version 3)
Quarter: 2021Q4

REPORT INFORMATION
  Report Type: Spontaneous
  Country: US (occurrence: US)
  Receive Date: 20210806
  Receipt Date: 20211102
  Transmission Date: 20220303
  Serious: No
  Sender: FDA-Public Use
  Company Number: US-ALXN-A202108786

PATIENT
  Sex: Female

DRUGS (1)
  1. STRENSIQ [Suspect]
     Active Substance: ASFOTASE ALFA
     Indication: Hypophosphatasia
     Dosage: UNK
     Route: 058

REACTIONS (5)
  - Urticaria chronic [Unknown]
  - Injection site pain [Unknown]
  - Injection site warmth [Recovering/Resolving]
  - Injection site erythema [Recovering/Resolving]
  - Injection site reaction [Unknown]
